FAERS Safety Report 9086041 (Version 1)
Quarter: 2013Q1

REPORT INFORMATION
  Report Type: Report from Study
  Country: US (occurrence: US)
  Receive Date: 20130130
  Receipt Date: 20130130
  Transmission Date: 20140127
  Serious: No
  Sender: FDA-Public Use
  Company Number: US-ABBOTT-12P-163-0986114-00

PATIENT
  Sex: Female
  Weight: 100.79 kg

DRUGS (7)
  1. HUMIRA [Suspect]
     Indication: CROHN^S DISEASE
     Dates: start: 20111115, end: 201207
  2. HUMIRA [Suspect]
     Dates: start: 201207
  3. IMURAN [Concomitant]
     Indication: CROHN^S DISEASE
  4. LEXAPRO [Concomitant]
     Indication: DEPRESSION
  5. NEXIUM [Concomitant]
     Indication: GASTRITIS
  6. LUTERA [Concomitant]
     Indication: CONTRACEPTION
  7. XANAX [Concomitant]
     Indication: ANXIETY

REACTIONS (5)
  - Drug effect decreased [Recovered/Resolved]
  - Inappropriate schedule of drug administration [Unknown]
  - Arthralgia [Recovered/Resolved]
  - Feeling abnormal [Recovered/Resolved]
  - Pain [Recovered/Resolved]
